FAERS Safety Report 5195606-9 (Version None)
Quarter: 2007Q1

REPORT INFORMATION
  Report Type: 
  Country: None (occurrence: None)
  Receive Date: 20070102
  Receipt Date: 20061220
  Transmission Date: 20070707
  Serious: Yes (Other)
  Sender: FDA-Public Use
  Company Number: PHBS2006JP19870

PATIENT
  Age: 59 Year
  Sex: Female

DRUGS (5)
  1. LAMISIL [Suspect]
     Indication: NAIL TINEA
     Route: 048
     Dates: start: 20060904, end: 20061219
  2. ADALAT [Concomitant]
     Dosage: 1 DF/DAY
     Route: 048
  3. VITAMEDIN S [Concomitant]
     Dosage: 3 DF/DAY
     Route: 048
  4. ALDOMET [Concomitant]
     Dosage: 2DF/DAY
     Route: 048
  5. ALFAROL [Concomitant]
     Dosage: 2 DF/DAY
     Route: 048

REACTIONS (1)
  - BLOOD CREATINE PHOSPHOKINASE INCREASED [None]
